FAERS Safety Report 16592066 (Version 1)
Quarter: 2019Q3

REPORT INFORMATION
  Report Type: Spontaneous
  Country: FR (occurrence: FR)
  Receive Date: 20190718
  Receipt Date: 20190718
  Transmission Date: 20191004
  Serious: Yes (Congenital Anomaly)
  Sender: FDA-Public Use
  Company Number: FR-TEVA-2019-FR-1078878

PATIENT
  Sex: Female
  Weight: 2.7 kg

DRUGS (2)
  1. SERESTA 10 MG, COMPRIME [Suspect]
     Active Substance: OXAZEPAM
     Indication: AGORAPHOBIA
     Dosage: 10 MG
     Route: 064
     Dates: start: 20180930, end: 20190520
  2. PAROXETINE. [Suspect]
     Active Substance: PAROXETINE
     Indication: AGORAPHOBIA
     Dosage: 40 MG
     Route: 064
     Dates: start: 20180930, end: 20190520

REACTIONS (3)
  - Premature baby [Recovered/Resolved]
  - Respiratory distress [Recovered/Resolved]
  - Hypotonia [Recovered/Resolved]

NARRATIVE: CASE EVENT DATE: 20190520
